FAERS Safety Report 18153511 (Version 10)
Quarter: 2021Q2

REPORT INFORMATION
  Report Type: Report from Study
  Country: BR (occurrence: BR)
  Receive Date: 20200816
  Receipt Date: 20210625
  Transmission Date: 20210717
  Serious: Yes (Life-Threatening, Hospitalization, Other)
  Sender: FDA-Public Use
  Company Number: NVSC2020BR220897

PATIENT
  Age: 63 Year
  Sex: Male
  Weight: 60 kg

DRUGS (5)
  1. LOSARTAN. [Suspect]
     Active Substance: LOSARTAN
     Indication: PRODUCT USED FOR UNKNOWN INDICATION
     Dosage: UNK
     Route: 065
  2. VOTRIENT [Suspect]
     Active Substance: PAZOPANIB HYDROCHLORIDE
     Dosage: 800 MG, QD
     Route: 065
     Dates: start: 201907
  3. VOTRIENT [Suspect]
     Active Substance: PAZOPANIB HYDROCHLORIDE
     Indication: METASTATIC RENAL CELL CARCINOMA
     Dosage: UNK
     Route: 065
     Dates: start: 201906
  4. VOTRIENT [Suspect]
     Active Substance: PAZOPANIB HYDROCHLORIDE
     Dosage: UNK
     Route: 065
     Dates: start: 20200804
  5. VOTRIENT [Suspect]
     Active Substance: PAZOPANIB HYDROCHLORIDE
     Dosage: UNK
     Route: 065
     Dates: start: 20190701

REACTIONS (59)
  - Neoplasm progression [Unknown]
  - Metastasis [Unknown]
  - Pain [Recovering/Resolving]
  - Malaise [Recovered/Resolved]
  - Oxygen consumption decreased [Unknown]
  - Asthenia [Unknown]
  - Dyspnoea [Unknown]
  - Renal pain [Unknown]
  - Emotional disorder [Recovered/Resolved]
  - Anosmia [Unknown]
  - Bone lesion [Unknown]
  - Hypoaesthesia oral [Recovered/Resolved]
  - Malaise [Unknown]
  - Feeding disorder [Not Recovered/Not Resolved]
  - Abdominal discomfort [Recovered/Resolved]
  - Gingival bleeding [Recovered/Resolved]
  - Ageusia [Recovering/Resolving]
  - Saliva altered [Unknown]
  - Gingival discomfort [Recovered/Resolved]
  - Tooth disorder [Unknown]
  - Ill-defined disorder [Unknown]
  - Paraesthesia [Recovered/Resolved]
  - Dysmorphism [Unknown]
  - Renal cancer metastatic [Unknown]
  - Malignant neoplasm progression [Unknown]
  - Diarrhoea [Not Recovered/Not Resolved]
  - Gingival disorder [Unknown]
  - Pruritus [Recovered/Resolved]
  - Dysstasia [Unknown]
  - Fatigue [Unknown]
  - Pain [Recovered/Resolved]
  - COVID-19 [Unknown]
  - Gingival cancer [Unknown]
  - Metastases to nasal sinuses [Unknown]
  - Blood pressure increased [Unknown]
  - Dysgeusia [Not Recovered/Not Resolved]
  - Tooth injury [Unknown]
  - General physical health deterioration [Unknown]
  - Respiratory rate decreased [Unknown]
  - Aphasia [Unknown]
  - Cancer pain [Recovered/Resolved]
  - Dental caries [Unknown]
  - Nodule [Unknown]
  - Decreased appetite [Not Recovered/Not Resolved]
  - Product dose omission issue [Not Recovered/Not Resolved]
  - Dysentery [Recovering/Resolving]
  - Vomiting [Recovering/Resolving]
  - Fear [Unknown]
  - Cough [Unknown]
  - Gingival swelling [Not Recovered/Not Resolved]
  - Anxiety [Unknown]
  - Second primary malignancy [Unknown]
  - Skin exfoliation [Recovered/Resolved]
  - Pallor [Not Recovered/Not Resolved]
  - Nausea [Recovering/Resolving]
  - Hair colour changes [Not Recovered/Not Resolved]
  - Fear [Recovered/Resolved]
  - Gingival hypertrophy [Recovered/Resolved]
  - Rhinorrhoea [Recovered/Resolved]

NARRATIVE: CASE EVENT DATE: 201907
